FAERS Safety Report 6473547-4 (Version None)
Quarter: 2009Q4

REPORT INFORMATION
  Report Type: 
  Country: None (occurrence: None)
  Receive Date: 20091204
  Receipt Date: 20090701
  Transmission Date: 20100525
  Serious: Yes (Hospitalization, Other)
  Sender: FDA-Public Use
  Company Number: US-ELI_LILLY_AND_COMPANY-US200812002403

PATIENT
  Sex: Male
  Weight: 145.13 kg

DRUGS (6)
  1. BYETTA [Suspect]
     Dosage: 5 UG, 2/D
     Route: 065
     Dates: start: 20071101, end: 20080401
  2. BYETTA [Suspect]
     Dosage: 10 UG, 2/D
     Route: 058
     Dates: start: 20080401, end: 20080404
  3. GLYBURIDE [Concomitant]
     Dosage: 5 MG, DAILY (1/D)
  4. GLUCOPHAGE [Concomitant]
     Dosage: 1000 MG, 2/D
  5. LISINOPRIL [Concomitant]
     Indication: DIABETES PROPHYLAXIS
     Dosage: 10 MG, DAILY (1/D)
  6. VANCOMYCIN [Concomitant]
     Indication: WOUND INFECTION STAPHYLOCOCCAL

REACTIONS (8)
  - CHOLECYSTITIS [None]
  - HYPERLIPIDAEMIA [None]
  - LIVER FUNCTION TEST ABNORMAL [None]
  - PANCREAS INFECTION [None]
  - PANCREATITIS ACUTE [None]
  - PANCREATITIS CHRONIC [None]
  - PANCREATITIS NECROTISING [None]
  - WEIGHT DECREASED [None]
